FAERS Safety Report 23205940 (Version 3)
Quarter: 2023Q4

REPORT INFORMATION
  Report Type: Other
  Country: JP (occurrence: JP)
  Receive Date: 20231120
  Receipt Date: 20231212
  Transmission Date: 20240110
  Serious: Yes (Death, Hospitalization, Other)
  Sender: FDA-Public Use
  Company Number: JP-ASTELLAS-2023JP010051

PATIENT
  Age: 86 Year
  Sex: Male

DRUGS (3)
  1. PADCEV [Suspect]
     Active Substance: ENFORTUMAB VEDOTIN-EJFV
     Indication: Ureteric cancer
     Route: 041
     Dates: start: 20230808, end: 20230822
  2. PADCEV [Suspect]
     Active Substance: ENFORTUMAB VEDOTIN-EJFV
     Indication: Malignant neoplasm of renal pelvis
  3. METOCLOPRAMIDE [Concomitant]
     Active Substance: METOCLOPRAMIDE
     Indication: Product used for unknown indication
     Dosage: UNK UNK, UNKNOWN FREQ.
     Route: 065

REACTIONS (2)
  - Pancytopenia [Fatal]
  - Toxic epidermal necrolysis [Fatal]

NARRATIVE: CASE EVENT DATE: 20230826
